FAERS Safety Report 9951643 (Version 1)
Quarter: 2014Q1

REPORT INFORMATION
  Report Type: Report from Study
  Country: US (occurrence: US)
  Receive Date: 20140304
  Receipt Date: 20140304
  Transmission Date: 20141002
  Serious: No
  Sender: FDA-Public Use
  Company Number: US-ABBVIE-13P-163-1071635-00

PATIENT
  Age: 62 Year
  Sex: Female

DRUGS (1)
  1. HUMIRA [Suspect]
     Indication: PRODUCT USED FOR UNKNOWN INDICATION
     Route: 058
     Dates: start: 20100423

REACTIONS (8)
  - Burning sensation [Unknown]
  - Erythema [Unknown]
  - Paraesthesia [Unknown]
  - Ocular hyperaemia [Unknown]
  - Paraesthesia [Unknown]
  - Eye irritation [Unknown]
  - Feeling cold [Unknown]
  - Paraesthesia [Unknown]
